FAERS Safety Report 7645476-1 (Version None)
Quarter: 2011Q3

REPORT INFORMATION
  Report Type: 
  Country: None (occurrence: None)
  Receive Date: 20110729
  Receipt Date: 20110718
  Transmission Date: 20111222
  Serious: Yes (Other)
  Sender: FDA-Public Use
  Company Number: GB-ELI_LILLY_AND_COMPANY-GB201105004589

PATIENT
  Age: 12 Year
  Sex: Male
  Weight: 37.5 kg

DRUGS (1)
  1. STRATTERA [Suspect]
     Indication: ATTENTION DEFICIT/HYPERACTIVITY DISORDER
     Dosage: 40 MG, QD
     Route: 048
     Dates: start: 20100127, end: 20101210

REACTIONS (6)
  - SELF INJURIOUS BEHAVIOUR [None]
  - AGITATION [None]
  - SLEEP DISORDER [None]
  - AGGRESSION [None]
  - SUICIDAL IDEATION [None]
  - DEPRESSED MOOD [None]
